FAERS Safety Report 6898911-0 (Version None)
Quarter: 2010Q3

REPORT INFORMATION
  Report Type: 
  Country: None (occurrence: None)
  Receive Date: 20100802
  Receipt Date: 20071224
  Transmission Date: 20110219
  Serious: No
  Sender: FDA-Public Use
  Company Number: US-PFIZER INC-2007067078

PATIENT
  Sex: Male
  Weight: 90.7 kg

DRUGS (3)
  1. LYRICA [Suspect]
     Indication: PARAESTHESIA
     Dosage: QHS: EVERY DAY
     Dates: start: 20070901
  2. LYRICA [Suspect]
     Indication: MULTIPLE SCLEROSIS
  3. SOLU-MEDROL [Concomitant]

REACTIONS (1)
  - DRUG INEFFECTIVE [None]
